FAERS Safety Report 8298888-X (Version None)
Quarter: 2012Q2

REPORT INFORMATION
  Report Type: 
  Country: None (occurrence: None)
  Receive Date: 20120419
  Receipt Date: 20120416
  Transmission Date: 20120825
  Serious: No
  Sender: FDA-Public Use
  Company Number: US-PFIZER INC-2012094778

PATIENT
  Age: 39 Year
  Sex: Female

DRUGS (2)
  1. VICODIN [Concomitant]
     Dosage: UNK
  2. LYRICA [Suspect]
     Indication: FIBROMYALGIA
     Dosage: UNK

REACTIONS (3)
  - ANXIETY DISORDER [None]
  - DRUG INEFFECTIVE [None]
  - FATIGUE [None]
